FAERS Safety Report 8559905-2 (Version None)
Quarter: 2012Q3

REPORT INFORMATION
  Report Type: 
  Country: None (occurrence: None)
  Receive Date: 20120802
  Receipt Date: 20120730
  Transmission Date: 20120928
  Serious: Yes (Life-Threatening, Hospitalization, Other)
  Sender: FDA-Public Use
  Company Number: PHHY2012KR065964

PATIENT
  Sex: Female

DRUGS (3)
  1. IRBESARTAN [Concomitant]
     Dates: start: 20120521
  2. INSULIN [Concomitant]
     Dates: start: 20120527
  3. AFINITOR [Suspect]
     Indication: METASTATIC RENAL CELL CARCINOMA
     Dosage: 10 MG, DAILY
     Route: 048
     Dates: start: 20120308, end: 20120730

REACTIONS (5)
  - BLOOD CREATININE INCREASED [None]
  - BLOOD UREA INCREASED [None]
  - METASTASES TO CENTRAL NERVOUS SYSTEM [None]
  - BLOOD CALCIUM INCREASED [None]
  - CONFUSIONAL STATE [None]
